FAERS Safety Report 9853212 (Version 2)
Quarter: 2014Q1

REPORT INFORMATION
  Report Type: Spontaneous
  Country: DE (occurrence: DE)
  Receive Date: 20140129
  Receipt Date: 20140206
  Transmission Date: 20141002
  Serious: Yes (Other)
  Sender: FDA-Public Use
  Company Number: DE-UCBSA-110730

PATIENT
  Age: 14 Year
  Sex: 0

DRUGS (1)
  1. METHYLPHENIDATE HYDROCHLORIDE [Suspect]
     Indication: ATTENTION DEFICIT/HYPERACTIVITY DISORDER
     Route: 048

REACTIONS (8)
  - Tachycardia [Recovered/Resolved]
  - Transaminases increased [Unknown]
  - Tic [Not Recovered/Not Resolved]
  - Growth retardation [Unknown]
  - Tourette^s disorder [Unknown]
  - Disturbance in attention [Recovered/Resolved]
  - Blood cholesterol increased [Unknown]
  - Tricuspid valve incompetence [Unknown]
